FAERS Safety Report 26198466 (Version 1)
Quarter: 2025Q4

REPORT INFORMATION
  Report Type: Spontaneous
  Country: US (occurrence: US)
  Receive Date: 20251224
  Receipt Date: 20251224
  Transmission Date: 20260119
  Serious: Yes (Other)
  Sender: PFIZER
  Company Number: US-MLMSERVICE-20251204-PI739482-00200-1

PATIENT
  Age: 79 Year
  Sex: Female

DRUGS (3)
  1. LEVOTHYROXINE SODIUM [Suspect]
     Active Substance: LEVOTHYROXINE SODIUM
     Indication: Hypothyroidism
     Dosage: 100 UG
  2. LEVOTHYROXINE SODIUM [Suspect]
     Active Substance: LEVOTHYROXINE SODIUM
     Dosage: 88 UG
  3. ELIQUIS [Concomitant]
     Active Substance: APIXABAN
     Indication: Hypothyroidism
     Dosage: UNK

REACTIONS (7)
  - Thyrotoxic crisis [Recovering/Resolving]
  - Encephalopathy [Recovering/Resolving]
  - Metabolic acidosis [Recovering/Resolving]
  - Normocytic anaemia [Recovering/Resolving]
  - Cardiac failure [Recovering/Resolving]
  - Hyperthyroidism [Recovering/Resolving]
  - Incorrect dose administered [Unknown]
